FAERS Safety Report 4300159-0 (Version None)
Quarter: 2004Q1

REPORT INFORMATION
  Report Type: 
  Country: None (occurrence: None)
  Receive Date: 20040218
  Receipt Date: 20040202
  Transmission Date: 20041129
  Serious: Yes (Other)
  Sender: FDA-Public Use
  Company Number: S04-USA-00613-01

PATIENT
  Age: 75 Year
  Sex: Female

DRUGS (5)
  1. NAMENDA [Suspect]
     Indication: DEMENTIA ALZHEIMER'S TYPE
     Dosage: 5 MG QD PO
     Route: 048
     Dates: start: 20040112, end: 20040118
  2. NAMENDA [Suspect]
     Indication: DEMENTIA ALZHEIMER'S TYPE
     Dosage: 5 MG BID PO
     Route: 048
     Dates: start: 20040119, end: 20040125
  3. ZOLOFT [Concomitant]
  4. ZYPREXA [Concomitant]
  5. BENADRYL [Concomitant]

REACTIONS (4)
  - ABASIA [None]
  - BEDRIDDEN [None]
  - HYPERTONIA [None]
  - MUSCULOSKELETAL STIFFNESS [None]
